FAERS Safety Report 4642628-X (Version None)
Quarter: 2005Q2

REPORT INFORMATION
  Report Type: 
  Country: None (occurrence: None)
  Receive Date: 20050422
  Receipt Date: 20050406
  Transmission Date: 20051028
  Serious: Yes (Hospitalization)
  Sender: FDA-Public Use
  Company Number: PHBS2005JP04932

PATIENT
  Sex: Female

DRUGS (3)
  1. CARBAMAZEPINE [Suspect]
     Indication: EPILEPSY
     Dosage: 400 MG/DAY
     Route: 048
  2. ZONISAMIDE [Suspect]
     Indication: EPILEPSY
     Dosage: 400 MG/DAY
     Route: 048
  3. VALPROATE SODIUM [Suspect]
     Indication: EPILEPSY
     Dosage: 800 TO 1200 MG/DAY
     Route: 048

REACTIONS (4)
  - CAESAREAN SECTION [None]
  - CYANOSIS [None]
  - DRUG EXPOSURE DURING PREGNANCY [None]
  - EPILEPSY [None]
